FAERS Safety Report 10884748 (Version 1)
Quarter: 2015Q1

REPORT INFORMATION
  Report Type: Spontaneous
  Country: US (occurrence: None)
  Receive Date: 20150227
  Receipt Date: 20150227
  Transmission Date: 20150721
  Serious: No
  Sender: FDA-Public Use
  Company Number: None

PATIENT
  Age: 60 Year
  Sex: Male
  Weight: 96.16 kg

DRUGS (3)
  1. CIMETIDENE [Concomitant]
  2. LEVOFLOXACIN 500 MG ZYDUS [Suspect]
     Active Substance: LEVOFLOXACIN
     Indication: BRONCHITIS
     Dosage: 1 PILL
     Route: 048
     Dates: start: 20150224, end: 20150225
  3. DAILY MULTIVITAMIN [Concomitant]
     Active Substance: VITAMINS

REACTIONS (5)
  - Arthralgia [None]
  - Paraesthesia [None]
  - Pain in extremity [None]
  - Pain [None]
  - Restlessness [None]

NARRATIVE: CASE EVENT DATE: 20150224
